FAERS Safety Report 5711723-6 (Version None)
Quarter: 2008Q2

REPORT INFORMATION
  Report Type: 
  Country: None (occurrence: None)
  Receive Date: 20080421
  Receipt Date: 20080414
  Transmission Date: 20081010
  Serious: Yes (Other)
  Sender: FDA-Public Use
  Company Number: US-PURDUE-USA_2007_0027704

PATIENT
  Age: 45 Year
  Sex: Female

DRUGS (3)
  1. OXYCONTIN [Suspect]
     Indication: PAIN
     Dosage: UNK, SEE TEXT
     Route: 048
  2. LORTAB [Concomitant]
     Dosage: UNK, PRN
  3. VALIUM [Concomitant]
     Dosage: 5 MG, BID

REACTIONS (3)
  - LIMB CRUSHING INJURY [None]
  - NERVE INJURY [None]
  - PAIN [None]
